FAERS Safety Report 5662133-1 (Version None)
Quarter: 2008Q1

REPORT INFORMATION
  Report Type: 
  Country: None (occurrence: None)
  Receive Date: 20080312
  Receipt Date: 20080222
  Transmission Date: 20080703
  Serious: No
  Sender: FDA-Public Use
  Company Number: US-BOEHRINGER INGELHEIM GMBH, GERMANY-2008-BP-02000BP

PATIENT
  Age: 76 Year
  Sex: Male
  Weight: 82 kg

DRUGS (7)
  1. FLOMAX [Suspect]
     Indication: BENIGN PROSTATIC HYPERPLASIA
     Route: 048
     Dates: start: 20070817, end: 20080208
  2. FLOMAX [Suspect]
     Indication: DYSURIA
  3. TOPROL-XL [Concomitant]
  4. LOTREL [Concomitant]
  5. ASPIRIN [Concomitant]
  6. DOXYCYCLINE [Concomitant]
  7. ALDACTAZIDE [Concomitant]

REACTIONS (1)
  - NIPPLE PAIN [None]
